FAERS Safety Report 11213014 (Version 1)
Quarter: 2015Q2

REPORT INFORMATION
  Report Type: Spontaneous
  Country: US (occurrence: US)
  Receive Date: 20150623
  Receipt Date: 20150623
  Transmission Date: 20150821
  Serious: No
  Sender: FDA-Public Use
  Company Number: US-009507513-1506USA008241

PATIENT
  Age: 64 Year
  Sex: Female

DRUGS (2)
  1. RIBAVIRIN. [Suspect]
     Active Substance: RIBAVIRIN
     Indication: HEPATITIS C
     Dosage: UNK, QD
     Dates: start: 201106, end: 201106
  2. MK-0000 (001) [Suspect]
     Active Substance: DEXAMETHASONE
     Indication: HEPATITIS C
     Dosage: UNK UNK, QW
     Dates: start: 201106, end: 201106

REACTIONS (4)
  - Asthenia [Recovered/Resolved]
  - Nausea [Recovered/Resolved]
  - Dizziness [Recovered/Resolved]
  - Arthralgia [Recovered/Resolved]

NARRATIVE: CASE EVENT DATE: 201106
